FAERS Safety Report 8865279 (Version 1)
Quarter: 2012Q4

REPORT INFORMATION
  Report Type: 
  Country: US (occurrence: US)
  Receive Date: 20121024
  Receipt Date: 20121024
  Transmission Date: 20130627
  Serious: No
  Sender: FDA-Public Use
  Company Number: US-AMGEN-USASP2011067423

PATIENT
  Age: 29 Year
  Sex: Female

DRUGS (1)
  1. ENBREL [Suspect]
     Indication: PSORIASIS
     Dosage: 50 mg, qwk
     Dates: start: 201012, end: 201012

REACTIONS (3)
  - Psoriatic arthropathy [Recovering/Resolving]
  - Oedema [Recovered/Resolved]
  - Psoriasis [Recovering/Resolving]
